FAERS Safety Report 25234974 (Version 2)
Quarter: 2025Q3

REPORT INFORMATION
  Report Type: Spontaneous
  Country: EU (occurrence: EU)
  Receive Date: 20250424
  Receipt Date: 20250702
  Transmission Date: 20251020
  Serious: Yes (Disabling, Other)
  Sender: PFIZER
  Company Number: None

PATIENT
  Age: 84 Year
  Sex: Female

DRUGS (2)
  1. LORLATINIB [Suspect]
     Active Substance: LORLATINIB
     Dosage: INITIALLY 100 MG PER DAY
     Dates: start: 20250305
  2. LORLATINIB [Suspect]
     Active Substance: LORLATINIB
     Dosage: THEN REDUCED TO 75 MG PER DAY (HALF TABLET OF LORVIQUA 100 MG, AND 1 TABLET OF LORVIQUA 25 MG)
     Dates: start: 20250311

REACTIONS (7)
  - Dyspraxia [Recovered/Resolved]
  - Fatigue [Recovered/Resolved]
  - Condition aggravated [Recovered/Resolved]
  - Oedema peripheral [Recovered/Resolved]
  - Arthralgia [Unknown]
  - Oedema [Unknown]
  - Wrong technique in product usage process [Unknown]

NARRATIVE: CASE EVENT DATE: 20250305
